FAERS Safety Report 12386839 (Version 1)
Quarter: 2016Q2

REPORT INFORMATION
  Report Type: Spontaneous
  Country: US (occurrence: US)
  Receive Date: 20160519
  Receipt Date: 20160519
  Transmission Date: 20160815
  Serious: No
  Sender: FDA-Public Use
  Company Number: US-TRIS PHARMA, INC.-1052509

PATIENT
  Age: 4 Year
  Sex: Male
  Weight: 14.51 kg

DRUGS (2)
  1. DEXTROMETHORPHAN POLISTIREX ER OS [Suspect]
     Active Substance: DEXTROMETHORPHAN HYDROBROMIDE
     Indication: WRONG DRUG ADMINISTERED
     Route: 048
     Dates: start: 20160205, end: 20160205
  2. OMNICEF [Concomitant]
     Active Substance: CEFDINIR
     Dates: start: 20160205

REACTIONS (2)
  - Abnormal behaviour [Recovered/Resolved]
  - Drug administration error [Recovered/Resolved]

NARRATIVE: CASE EVENT DATE: 20160205
